FAERS Safety Report 5369474-6 (Version None)
Quarter: 2007Q2

REPORT INFORMATION
  Report Type: 
  Country: None (occurrence: None)
  Receive Date: 20070620
  Receipt Date: 20070612
  Transmission Date: 20071010
  Serious: Yes (Death, Hospitalization)
  Sender: FDA-Public Use
  Company Number: 028-C5013-07051022

PATIENT
  Age: 76 Year
  Sex: Female

DRUGS (8)
  1. CC-5013 (LENALIDOMIDE) (CAPSULES) [Suspect]
     Indication: MULTIPLE MYELOMA
     Dosage: SEE IMAGE
     Route: 048
     Dates: start: 20061030, end: 20061230
  2. CC-5013 (LENALIDOMIDE) (CAPSULES) [Suspect]
     Indication: MULTIPLE MYELOMA
     Dosage: SEE IMAGE
     Route: 048
     Dates: start: 20070125, end: 20070214
  3. DEXAMETHASONE TAB [Suspect]
     Indication: DRUG USE FOR UNKNOWN INDICATION
     Dosage: PULSE
     Dates: start: 20061030
  4. ASPIRIN [Concomitant]
  5. RABEPRAZOLE SODIUM [Concomitant]
  6. AVAPRO [Concomitant]
  7. HYDROCHOLORTHIAZIDE (HYDROCHLOROTHIAZIDE) [Concomitant]
  8. LOVASTATIN [Concomitant]

REACTIONS (3)
  - NEUTROPENIA [None]
  - PNEUMONIA [None]
  - RENAL FAILURE [None]
